FAERS Safety Report 17912172 (Version 1)
Quarter: 2020Q2

REPORT INFORMATION
  Report Type: Spontaneous
  Country: PT (occurrence: PT)
  Receive Date: 20200618
  Receipt Date: 20200618
  Transmission Date: 20200714
  Serious: Yes (Hospitalization, Other)
  Sender: FDA-Public Use
  Company Number: PT-ACCORD-185563

PATIENT
  Age: 74 Year
  Sex: Male

DRUGS (2)
  1. TRAZODONE [Suspect]
     Active Substance: TRAZODONE HYDROCHLORIDE
     Indication: AGITATION
  2. TRAZODONE [Suspect]
     Active Substance: TRAZODONE HYDROCHLORIDE
     Indication: INSOMNIA
     Dosage: 100 MILLIGRAM DAILY
     Route: 048

REACTIONS (3)
  - Cholestasis [Recovered/Resolved]
  - Hepatic lesion [Recovered/Resolved]
  - Hepatitis toxic [Recovered/Resolved]
